FAERS Safety Report 7187556-3 (Version None)
Quarter: 2010Q4

REPORT INFORMATION
  Report Type: 
  Country: None (occurrence: None)
  Receive Date: 20101222
  Receipt Date: 20100629
  Transmission Date: 20110411
  Serious: No
  Sender: FDA-Public Use
  Company Number: US-AMGEN-KDL421318

PATIENT

DRUGS (10)
  1. ENBREL [Suspect]
     Indication: PRODUCT USED FOR UNKNOWN INDICATION
     Dosage: 50 MG, QWK
     Route: 058
  2. TRIAMCINOLONE ACETONIDE [Concomitant]
     Dosage: UNK UNK, UNK
  3. NAPROXEN [Concomitant]
     Dosage: 250 MG, UNK
  4. GABAPENTIN [Concomitant]
     Dosage: 100 MG, UNK
  5. BACLOFEN [Concomitant]
     Dosage: 10 MG, UNK
  6. RANITIDINE HYDROCHLORIDE [Concomitant]
     Dosage: 150 MG, UNK
  7. LANSOPRAZOLE [Concomitant]
     Dosage: 15 MG, UNK
  8. SULFASALAZINE [Concomitant]
     Dosage: 500 MG, UNK
  9. ERGOCALCIFEROL [Concomitant]
     Dosage: 1000 IU, UNK
  10. HYDROCODONE BITARTRATE AND ACETAMINOPHEN [Concomitant]
     Dosage: 325 MG, UNK

REACTIONS (1)
  - DYSPNOEA [None]
